FAERS Safety Report 13321704 (Version 2)
Quarter: 2017Q2

REPORT INFORMATION
  Report Type: Spontaneous
  Country: US (occurrence: US)
  Receive Date: 20170310
  Receipt Date: 20170411
  Transmission Date: 20170830
  Serious: Yes (Other)
  Sender: FDA-Public Use
  Company Number: US-PFIZER INC-2017097372

PATIENT
  Sex: Female

DRUGS (1)
  1. XELJANZ [Suspect]
     Active Substance: TOFACITINIB CITRATE
     Dosage: 5 MG, UNK

REACTIONS (19)
  - Hypoaesthesia [Unknown]
  - Sinus disorder [Unknown]
  - Gastrointestinal disorder [Unknown]
  - Myalgia [Unknown]
  - Abdominal pain [Unknown]
  - Paraesthesia [Unknown]
  - Confusional state [Unknown]
  - Deafness [Unknown]
  - Tinnitus [Unknown]
  - Chest pain [Unknown]
  - Palpitations [Unknown]
  - Joint stiffness [Unknown]
  - Headache [Unknown]
  - Weight fluctuation [Unknown]
  - Arthralgia [Unknown]
  - Joint swelling [Unknown]
  - Amnesia [Unknown]
  - Pyrexia [Unknown]
  - Fatigue [Unknown]
